FAERS Safety Report 12400636 (Version 1)
Quarter: 2016Q2

REPORT INFORMATION
  Report Type: Spontaneous
  Country: US (occurrence: None)
  Receive Date: 20160524
  Receipt Date: 20160524
  Transmission Date: 20160815
  Serious: Yes (Life-Threatening, Hospitalization)
  Sender: FDA-Public Use
  Company Number: None

PATIENT
  Age: 77 Year
  Sex: Female
  Weight: 83.91 kg

DRUGS (14)
  1. DULCOLAX (BISACODYL) [Concomitant]
     Active Substance: BISACODYL
  2. POLYEHYLENE GLYCOL (MIRALAX) [Concomitant]
  3. SENNOSIDES-DOCUSATE (SENOKOT-S) [Concomitant]
  4. TYLENOL [Concomitant]
     Active Substance: ACETAMINOPHEN
  5. ELIQUIS [Concomitant]
     Active Substance: APIXABAN
  6. QUETIAPINE (SEROQUEL) [Concomitant]
  7. AMANTADINE HCL (SYMMETREL) [Concomitant]
  8. ASPIRIN. [Concomitant]
     Active Substance: ASPIRIN
  9. VIMPAT [Concomitant]
     Active Substance: LACOSAMIDE
  10. METOPROLOL TARTRATE (LOPRESSOR) [Concomitant]
  11. LIPITOR [Concomitant]
     Active Substance: ATORVASTATIN CALCIUM
  12. FLUOXETINE (PROZAC) [Concomitant]
  13. MELATONIN [Concomitant]
     Active Substance: MELATONIN
  14. ELIQUIS [Suspect]
     Active Substance: APIXABAN
     Indication: THROMBOSIS PROPHYLAXIS
     Route: 048
     Dates: start: 20160315, end: 20160316

REACTIONS (2)
  - Shock haemorrhagic [None]
  - Anaemia [None]

NARRATIVE: CASE EVENT DATE: 20160316
